FAERS Safety Report 8784173 (Version 1)
Quarter: 2012Q4

REPORT INFORMATION
  Report Type: Report from Study
  Country: US (occurrence: US)
  Receive Date: 20120913
  Receipt Date: 20120913
  Transmission Date: 20130627
  Serious: No
  Sender: FDA-Public Use
  Company Number: US-VERTEX PHARMACEUTICAL INC.-AE-2012-008986

PATIENT
  Age: 50 Year
  Sex: Male

DRUGS (9)
  1. INCIVEK [Suspect]
     Indication: HEPATITIS C
     Route: 048
     Dates: start: 20120621
  2. PEGASYS PROCLICK [Concomitant]
     Indication: HEPATITIS C
     Dates: start: 20120621
  3. RIBAPAK [Concomitant]
     Indication: HEPATITIS C
     Dates: start: 20120621
  4. RIBAPAK [Concomitant]
     Route: 048
  5. METHADONE [Concomitant]
  6. LISINOPRIL [Concomitant]
  7. BETAMETHA VAL [Concomitant]
  8. HYDROXYZINE HYDROCHLORIDE [Concomitant]
  9. IBUPROFEN [Concomitant]

REACTIONS (9)
  - Dyspnoea [Unknown]
  - Influenza like illness [Unknown]
  - Pyrexia [Unknown]
  - Headache [Unknown]
  - Fatigue [Unknown]
  - Rash [Unknown]
  - Haemorrhoids [Unknown]
  - Red blood cell count decreased [Unknown]
  - Dysgeusia [Unknown]
